FAERS Safety Report 4713998-9 (Version None)
Quarter: 2005Q3

REPORT INFORMATION
  Report Type: 
  Country: None (occurrence: None)
  Receive Date: 20050714
  Receipt Date: 20050706
  Transmission Date: 20060218
  Serious: Yes (Other)
  Sender: FDA-Public Use
  Company Number: CZ-BOEHRINGER INGELHEIM PHARMACEUTICALS, INC.-2005-DE-02595GD

PATIENT

DRUGS (1)
  1. ACETYLSALICYLIC ACID + DIPYRIDAMOLE [Suspect]
     Indication: PROPHYLAXIS
     Dosage: 25 MG ASA + 200 MG DIPYRIDAMOLE

REACTIONS (1)
  - DRUG INEFFECTIVE [None]
